FAERS Safety Report 7816980-8 (Version None)
Quarter: 2011Q4

REPORT INFORMATION
  Report Type: 
  Country: None (occurrence: None)
  Receive Date: 20111017
  Receipt Date: 20110921
  Transmission Date: 20120403
  Serious: Yes (Other)
  Sender: FDA-Public Use
  Company Number: SE-BRISTOL-MYERS SQUIBB COMPANY-16143414

PATIENT
  Age: 74 Year
  Sex: Female

DRUGS (8)
  1. PRIMPERAN TAB [Concomitant]
  2. HYDROCORTISONE [Concomitant]
     Dosage: HYDROKORTISON NYCOMED TABLET
  3. VOLTAREN [Concomitant]
     Dosage: 1 DF : 11.6MG/G,VOLTAREN GEL 11.6MG/G
  4. LYSODREN [Suspect]
     Dosage: ABOUT A HALF MONTH LATER
     Route: 048
     Dates: start: 20110317, end: 20110506
  5. OXYCODONE HCL [Concomitant]
  6. ZOLPIDEM TARTRATE [Concomitant]
  7. FRAGMIN [Concomitant]
  8. INDERAL [Concomitant]

REACTIONS (1)
  - BILIARY CIRRHOSIS PRIMARY [None]
